FAERS Safety Report 12691197 (Version 4)
Quarter: 2017Q2

REPORT INFORMATION
  Report Type: Report from Study
  Country: None (occurrence: US)
  Receive Date: 20160826
  Receipt Date: 20170525
  Transmission Date: 20170830
  Serious: Yes (Other)
  Sender: FDA-Public Use
  Company Number: US-ABBVIE-16K-163-1709112-00

PATIENT
  Sex: Male

DRUGS (2)
  1. ATENOLOL. [Concomitant]
     Active Substance: ATENOLOL
     Indication: HYPERTENSION
  2. HUMIRA [Suspect]
     Active Substance: ADALIMUMAB
     Indication: PSORIASIS
     Route: 058
     Dates: start: 20160523, end: 201608

REACTIONS (6)
  - Diarrhoea [Recovering/Resolving]
  - Frequent bowel movements [Not Recovered/Not Resolved]
  - Prostatitis [Recovered/Resolved]
  - Weight decreased [Unknown]
  - Haematospermia [Recovered/Resolved]
  - Prostate infection [Recovering/Resolving]

NARRATIVE: CASE EVENT DATE: 2016
